FAERS Safety Report 10250550 (Version 1)
Quarter: 2014Q2

REPORT INFORMATION
  Report Type: Spontaneous
  Country: US (occurrence: US)
  Receive Date: 20140620
  Receipt Date: 20140620
  Transmission Date: 20141212
  Serious: Yes (Hospitalization)
  Sender: FDA-Public Use
  Company Number: US-GLAXOSMITHKLINE-A1077100A

PATIENT
  Age: 66 Year
  Sex: Female

DRUGS (3)
  1. ADVAIR [Suspect]
     Indication: ASTHMA
     Dosage: 1PUFF TWICE PER DAY
     Route: 055
     Dates: start: 2000
  2. ATORVASTATIN [Concomitant]
  3. TELMISARTAN [Concomitant]

REACTIONS (2)
  - Knee operation [Unknown]
  - Dysphonia [Not Recovered/Not Resolved]
